FAERS Safety Report 4947054-1 (Version None)
Quarter: 2006Q1

REPORT INFORMATION
  Report Type: 
  Country: None (occurrence: None)
  Receive Date: 20060317
  Receipt Date: 20050823
  Transmission Date: 20060701
  Serious: Yes (Hospitalization, Other)
  Sender: FDA-Public Use
  Company Number: SZ-BRISTOL-MYERS SQUIBB COMPANY-13086673

PATIENT
  Age: 24 Year
  Sex: Female

DRUGS (5)
  1. EFAVIRENZ [Suspect]
     Indication: HIV INFECTION
     Dosage: THERAPY STOPPED ON 12-AUG-2005 AND THEN RESTARTED IN 2005 AT 600 MG DAILY.
     Route: 048
     Dates: start: 20050518, end: 20060306
  2. STAVUDINE [Suspect]
     Indication: HIV INFECTION
     Route: 048
     Dates: start: 20050518, end: 20050812
  3. LAMIVUDINE [Suspect]
     Indication: HIV INFECTION
     Dosage: STOPPED ON 12-AUG-2005 AND RESTARTED AT SAME DOSAGE IN 2005.
     Route: 048
     Dates: start: 20050518, end: 20060306
  4. ZIDOVUDINE [Suspect]
     Indication: HIV INFECTION
     Route: 048
     Dates: start: 20050824, end: 20060306
  5. STREPTOMYCIN [Concomitant]
     Route: 051

REACTIONS (6)
  - ANAEMIA [None]
  - CONDITION AGGRAVATED [None]
  - GENERAL PHYSICAL HEALTH DETERIORATION [None]
  - LACTIC ACIDOSIS [None]
  - MULTIPLE-DRUG RESISTANCE [None]
  - PULMONARY TUBERCULOSIS [None]
